FAERS Safety Report 23824990 (Version 2)
Quarter: 2024Q2

REPORT INFORMATION
  Report Type: Report from Study
  Country: AU (occurrence: AU)
  Receive Date: 20240507
  Receipt Date: 20240612
  Transmission Date: 20240716
  Serious: Yes (Hospitalization, Other)
  Sender: FDA-Public Use
  Company Number: AU-Vifor (International) Inc.-VIT-2024-03718

PATIENT
  Age: 67 Year
  Sex: Female

DRUGS (6)
  1. AVACOPAN [Suspect]
     Active Substance: AVACOPAN
     Indication: Anti-neutrophil cytoplasmic antibody positive vasculitis
     Dosage: 30 MILLIGRAM, QD
     Route: 048
     Dates: start: 202404
  2. PANTOPRAZOLE [Concomitant]
     Active Substance: PANTOPRAZOLE
     Dosage: UNK
  3. BACTRIM [Concomitant]
     Active Substance: SULFAMETHOXAZOLE\TRIMETHOPRIM
     Dosage: 160/800 MG, 1/2 TABLET DAILY
  4. CHOLECALCIFEROL [Concomitant]
     Active Substance: CHOLECALCIFEROL
     Dosage: UNK
  5. DOCUSATE SODIUM\SENNOSIDES A AND B [Concomitant]
     Active Substance: DOCUSATE SODIUM\SENNOSIDES A AND B
     Dosage: PRN
  6. RITUXIMAB [Concomitant]
     Active Substance: RITUXIMAB
     Dosage: 2 X 1 G (20/3 AND 3/4)

REACTIONS (4)
  - Inflammatory marker increased [Recovered/Resolved]
  - Malaise [Recovered/Resolved]
  - Liver function test abnormal [Recovered/Resolved]
  - Liver injury [Recovered/Resolved]

NARRATIVE: CASE EVENT DATE: 20240401
